FAERS Safety Report 5649514-7 (Version None)
Quarter: 2008Q1

REPORT INFORMATION
  Report Type: 
  Country: None (occurrence: None)
  Receive Date: 20080304
  Receipt Date: 20080221
  Transmission Date: 20080703
  Serious: Yes (Death)
  Sender: FDA-Public Use
  Company Number: CZ-PFIZER INC-2008016321

PATIENT
  Age: 50 Year
  Sex: Male

DRUGS (8)
  1. CHANTIX [Suspect]
     Indication: SMOKING CESSATION THERAPY
     Route: 048
  2. LOKREN [Concomitant]
     Route: 048
  3. RAMIPRIL [Concomitant]
     Route: 048
  4. DEPAKENE [Concomitant]
     Route: 048
  5. SERTRALINE [Concomitant]
     Route: 048
  6. ATROVENT [Concomitant]
     Route: 048
  7. PERINDOPRIL ERBUMINE/INDAPAMIDE HEMIHYDRATE [Concomitant]
     Route: 048
  8. ISOPTIN [Concomitant]
     Route: 048

REACTIONS (1)
  - DROWNING [None]
